FAERS Safety Report 7790508-3 (Version None)
Quarter: 2011Q3

REPORT INFORMATION
  Report Type: 
  Country: None (occurrence: None)
  Receive Date: 20110930
  Receipt Date: 20110927
  Transmission Date: 20111222
  Serious: Yes (Death, Other)
  Sender: FDA-Public Use
  Company Number: PHEH2009US19086

PATIENT
  Sex: Female

DRUGS (13)
  1. ZOMETA [Suspect]
     Indication: BREAST CANCER METASTATIC
     Route: 042
  2. ROXICET [Concomitant]
  3. PREDNISONE [Concomitant]
     Dosage: 5 MG, BID
     Route: 048
  4. MORPHINE [Concomitant]
  5. CLINDAMYCIN [Concomitant]
     Dosage: 300 MG, TID
     Route: 048
  6. AREDIA [Suspect]
     Indication: BREAST CANCER METASTATIC
  7. OXYCONTIN [Concomitant]
     Dosage: 20 MG, BID
     Route: 048
  8. FLAGYL [Concomitant]
  9. ZANTAC [Concomitant]
     Dosage: 150 MG, BID
     Route: 048
  10. ATIVAN [Concomitant]
     Dosage: 1 MG, BID
  11. METHOTREXATE [Concomitant]
  12. NEURONTIN [Concomitant]
  13. CATAPRES                                /USA/ [Concomitant]
     Dosage: 0.1 MG, QW

REACTIONS (23)
  - NECK PAIN [None]
  - ARTHRITIS [None]
  - OSTEOPENIA [None]
  - SCOLIOSIS [None]
  - OSTEOMYELITIS [None]
  - PAIN IN JAW [None]
  - JAW FRACTURE [None]
  - NEUROPATHY PERIPHERAL [None]
  - FACET JOINT SYNDROME [None]
  - PATHOLOGICAL FRACTURE [None]
  - OSTEONECROSIS OF JAW [None]
  - DISABILITY [None]
  - TOOTHACHE [None]
  - DEFORMITY [None]
  - IMPAIRED WORK ABILITY [None]
  - OSTEOARTHRITIS [None]
  - COMPRESSION FRACTURE [None]
  - HYPERTENSION [None]
  - SWELLING FACE [None]
  - PAIN [None]
  - ANXIETY [None]
  - DEATH [None]
  - ANHEDONIA [None]
